FAERS Safety Report 4618591-4 (Version None)
Quarter: 2005Q1

REPORT INFORMATION
  Report Type: 
  Country: None (occurrence: None)
  Receive Date: 20050324
  Receipt Date: 20050307
  Transmission Date: 20050727
  Serious: Yes (Other)
  Sender: FDA-Public Use
  Company Number: MED000048

PATIENT

DRUGS (2)
  1. SODIUM CITRATE [Suspect]
     Indication: PLASMAPHERESIS
     Dosage: ONCE
     Dates: start: 20050119, end: 20050119
  2. SODIUM CHLORIDE 0.9% [Suspect]
     Indication: PLASMAPHERESIS
     Dosage: ONCE
     Dates: start: 20050119, end: 20050119

REACTIONS (6)
  - CHEST DISCOMFORT [None]
  - DIZZINESS [None]
  - LIMB DISCOMFORT [None]
  - PAIN IN EXTREMITY [None]
  - PRURITUS [None]
  - URTICARIA [None]
